FAERS Safety Report 23225723 (Version 1)
Quarter: 2023Q4

REPORT INFORMATION
  Report Type: Spontaneous
  Country: US (occurrence: US)
  Receive Date: 20231124
  Receipt Date: 20231124
  Transmission Date: 20240110
  Serious: Yes (Other)
  Sender: FDA-Public Use
  Company Number: US-SA-SAC20231120001035

PATIENT
  Age: 45 Year
  Sex: Male
  Weight: 78.744 kg

DRUGS (11)
  1. CERDELGA [Suspect]
     Active Substance: ELIGLUSTAT
     Indication: Hyperlipidaemia
     Dosage: 84 MG, BID
     Route: 065
     Dates: start: 20230630
  2. PREDNISONE [Concomitant]
     Active Substance: PREDNISONE
  3. EVEROLIMUS [Concomitant]
     Active Substance: EVEROLIMUS
  4. PANTOPRAZOLE [Concomitant]
     Active Substance: PANTOPRAZOLE
  5. LEVOTHYROXINE SODIUM [Concomitant]
     Active Substance: LEVOTHYROXINE SODIUM
  6. ASPIRIN [Concomitant]
     Active Substance: ASPIRIN
  7. TACROLIMUS [Concomitant]
     Active Substance: TACROLIMUS
  8. ZORTRESS [Concomitant]
     Active Substance: EVEROLIMUS
  9. PRAVASTATIN SODIUM [Concomitant]
     Active Substance: PRAVASTATIN SODIUM
  10. LOSARTAN POTASSIUM [Concomitant]
     Active Substance: LOSARTAN POTASSIUM
  11. LACTOSE [Concomitant]
     Active Substance: LACTOSE

REACTIONS (3)
  - Liver transplant [Unknown]
  - Renal transplant [Unknown]
  - Product use in unapproved indication [Unknown]

NARRATIVE: CASE EVENT DATE: 20230101
